FAERS Safety Report 24236309 (Version 2)
Quarter: 2024Q3

REPORT INFORMATION
  Report Type: Report from Study
  Country: BG (occurrence: BG)
  Receive Date: 20240822
  Receipt Date: 20240910
  Transmission Date: 20241016
  Serious: Yes (Hospitalization, Other)
  Sender: ROCHE
  Company Number: None

PATIENT
  Age: 64 Year
  Sex: Female

DRUGS (3)
  1. BEVACIZUMAB [Suspect]
     Active Substance: BEVACIZUMAB
     Indication: Ovarian cancer
     Route: 065
  2. PACLITAXEL [Suspect]
     Active Substance: PACLITAXEL
     Indication: Ovarian cancer
     Route: 065
  3. CARBOPLATIN [Suspect]
     Active Substance: CARBOPLATIN
     Indication: Ovarian cancer
     Route: 065

REACTIONS (9)
  - Ascites [Recovered/Resolved]
  - Abdominal distension [Unknown]
  - Dyspnoea [Unknown]
  - Mobility decreased [Recovering/Resolving]
  - Haemoglobin abnormal [Unknown]
  - Abdominal adhesions [Unknown]
  - Fixed bowel loop [Unknown]
  - Fatigue [Unknown]
  - General physical health deterioration [Recovering/Resolving]
